FAERS Safety Report 8326131-1 (Version None)
Quarter: 2012Q2

REPORT INFORMATION
  Report Type: 
  Country: None (occurrence: None)
  Receive Date: 20120501
  Receipt Date: 20100608
  Transmission Date: 20120825
  Serious: No
  Sender: FDA-Public Use
  Company Number: US-TEVA-2010003151

PATIENT
  Sex: Female
  Weight: 45.4 kg

DRUGS (4)
  1. NUVIGIL [Suspect]
     Indication: PARKINSON'S DISEASE
     Dosage: 150 MILLIGRAM;
     Route: 048
     Dates: start: 20100608
  2. EXELON [Concomitant]
  3. SINEMET [Concomitant]
     Dates: start: 20080401
  4. AZILECT [Concomitant]
     Dates: start: 20090101

REACTIONS (3)
  - DRUG INEFFECTIVE FOR UNAPPROVED INDICATION [None]
  - EXPIRED DRUG ADMINISTERED [None]
  - DRUG DISPENSING ERROR [None]
